FAERS Safety Report 6203017-X (Version None)
Quarter: 2009Q2

REPORT INFORMATION
  Report Type: 
  Country: None (occurrence: None)
  Receive Date: 20090514
  Receipt Date: 20090507
  Transmission Date: 20091009
  Serious: Yes (Disabling)
  Sender: FDA-Public Use
  Company Number: TUK2009A00085

PATIENT
  Age: 66 Year
  Sex: Female

DRUGS (6)
  1. ACTOS [Suspect]
     Dosage: 15 MG ORAL
     Route: 048
     Dates: start: 20090204, end: 20090325
  2. ADALAT [Concomitant]
  3. AMITRIPTYLINE HYDROCHLORIDE [Concomitant]
  4. BENDROFLUMETHIAZIDE (BENDROFLUMETHIAZIDE) [Concomitant]
  5. EZETIMIBE [Concomitant]
  6. GLIPIZIDE [Concomitant]

REACTIONS (3)
  - ABDOMINAL DISTENSION [None]
  - OEDEMA PERIPHERAL [None]
  - WEIGHT INCREASED [None]
